FAERS Safety Report 5949827-5 (Version None)
Quarter: 2008Q4

REPORT INFORMATION
  Report Type: 
  Country: None (occurrence: None)
  Receive Date: 20081112
  Receipt Date: 20081107
  Transmission Date: 20090506
  Serious: Yes (Life-Threatening, Other)
  Sender: FDA-Public Use
  Company Number: AU-ASTRAZENECA-2008AP08712

PATIENT
  Age: 44 Year
  Sex: Female

DRUGS (4)
  1. NAROPIN [Suspect]
     Indication: NERVE BLOCK
  2. PROPOFOL [Concomitant]
  3. MIDAZOLAM HCL [Concomitant]
  4. CLONIDINE [Concomitant]

REACTIONS (2)
  - DRUG EFFECT DECREASED [None]
  - DRUG TOXICITY [None]
